FAERS Safety Report 15779128 (Version 5)
Quarter: 2019Q3

REPORT INFORMATION
  Report Type: Report from Study
  Country: CA (occurrence: CA)
  Receive Date: 20190101
  Receipt Date: 20190724
  Transmission Date: 20191004
  Serious: Yes (Hospitalization)
  Sender: FDA-Public Use
  Company Number: CA-TAKEDA-2018TUS032071

PATIENT
  Age: 20 Year
  Sex: Female

DRUGS (2)
  1. VEDOLIZUMAB [Suspect]
     Active Substance: VEDOLIZUMAB
     Indication: CROHN^S DISEASE
     Dosage: 300 MILLIGRAM
     Route: 042
     Dates: start: 20180828, end: 20190318
  2. SIMPONI [Concomitant]
     Active Substance: GOLIMUMAB
     Dosage: 400 MILLIGRAM, Q4WEEKS

REACTIONS (4)
  - Crohn^s disease [Recovering/Resolving]
  - Clostridium difficile infection [Recovering/Resolving]
  - Off label use [Unknown]
  - Fluid intake reduced [Unknown]

NARRATIVE: CASE EVENT DATE: 20181102
